FAERS Safety Report 17430275 (Version 1)
Quarter: 2020Q1

REPORT INFORMATION
  Report Type: Spontaneous
  Country: US (occurrence: US)
  Receive Date: 20200218
  Receipt Date: 20200218
  Transmission Date: 20200409
  Serious: No
  Sender: FDA-Public Use
  Company Number: US-PFIZER INC-2020071406

PATIENT
  Age: 45 Year
  Sex: Female

DRUGS (1)
  1. XELJANZ XR [Suspect]
     Active Substance: TOFACITINIB CITRATE
     Indication: RHEUMATOID ARTHRITIS
     Dosage: 11 MG, 1X/DAY
     Route: 048
     Dates: start: 20191030, end: 20200213

REACTIONS (6)
  - Oropharyngeal pain [Unknown]
  - Herpes zoster [Recovered/Resolved]
  - Influenza [Unknown]
  - Pain [Unknown]
  - Ear pain [Unknown]
  - Chest pain [Unknown]
